FAERS Safety Report 25179404 (Version 1)
Quarter: 2025Q2

REPORT INFORMATION
  Report Type: Spontaneous
  Country: CN (occurrence: CN)
  Receive Date: 20250409
  Receipt Date: 20250409
  Transmission Date: 20250717
  Serious: Yes (Life-Threatening, Other)
  Sender: PFIZER
  Company Number: CN-PFIZER INC-PV202500041912

PATIENT
  Age: 70 Year
  Sex: Female
  Weight: 50 kg

DRUGS (8)
  1. VFEND [Suspect]
     Active Substance: VORICONAZOLE
     Indication: Cryptococcosis
     Dosage: 0.2 G, 2X/DAY
     Route: 041
     Dates: start: 20250213, end: 20250221
  2. VFEND [Suspect]
     Active Substance: VORICONAZOLE
     Indication: Anti-infective therapy
     Dosage: 0.2 G, 2X/DAY
     Route: 041
     Dates: start: 20250322, end: 20250330
  3. DIFLUCAN [Suspect]
     Active Substance: FLUCONAZOLE
     Indication: Cryptococcosis
     Dosage: 0.2 G, 1X/DAY
     Dates: start: 20250224, end: 20250303
  4. DIFLUCAN [Suspect]
     Active Substance: FLUCONAZOLE
     Indication: Anti-infective therapy
     Dosage: 0.2 G, 1X/DAY
     Dates: start: 20250318, end: 20250322
  5. FLUCONAZOLE [Suspect]
     Active Substance: FLUCONAZOLE
     Indication: Cryptococcosis
     Dosage: 0.2 G, 1X/DAY
     Route: 041
     Dates: start: 20250308, end: 20250318
  6. VORICONAZOLE [Suspect]
     Active Substance: VORICONAZOLE
     Indication: Cryptococcosis
     Dosage: 200 MG, 2X/DAY
     Dates: start: 20250221, end: 20250224
  7. SODIUM CHLORIDE [Concomitant]
     Active Substance: SODIUM CHLORIDE
     Indication: Vehicle solution use
     Dosage: 100 ML, 2X/DAY
     Route: 041
     Dates: start: 20250213, end: 20250221
  8. SODIUM CHLORIDE [Concomitant]
     Active Substance: SODIUM CHLORIDE
     Dosage: 100 ML, 2X/DAY
     Route: 041
     Dates: start: 20250322, end: 20250330

REACTIONS (5)
  - Cardiac arrest [Recovering/Resolving]
  - Blood pressure decreased [Recovering/Resolving]
  - Cardio-respiratory arrest [Recovering/Resolving]
  - Ventricular tachycardia [Recovering/Resolving]
  - Arrhythmia [Recovering/Resolving]

NARRATIVE: CASE EVENT DATE: 20250305
